FAERS Safety Report 8021080-0 (Version None)
Quarter: 2012Q1

REPORT INFORMATION
  Report Type: 
  Country: None (occurrence: None)
  Receive Date: 20120104
  Receipt Date: 20111221
  Transmission Date: 20120608
  Serious: Yes (Other)
  Sender: FDA-Public Use
  Company Number: JP-SANOFI-AVENTIS-2011SA085000

PATIENT
  Age: 80 Year
  Sex: Male

DRUGS (7)
  1. ZOLPIDEM [Suspect]
     Route: 048
  2. PLAVIX [Suspect]
     Route: 048
  3. OMEPRAZOLE [Concomitant]
     Route: 048
  4. ASPIRIN [Concomitant]
     Route: 048
  5. MERISLON [Concomitant]
     Route: 048
  6. CALBLOCK [Concomitant]
     Route: 048
  7. FERROUS CITRATE [Concomitant]
     Route: 048

REACTIONS (1)
  - LOSS OF CONSCIOUSNESS [None]
